FAERS Safety Report 4774509-5 (Version None)
Quarter: 2005Q3

REPORT INFORMATION
  Report Type: 
  Country: None (occurrence: None)
  Receive Date: 20050913
  Receipt Date: 20050908
  Transmission Date: 20060218
  Serious: Yes (Hospitalization)
  Sender: FDA-Public Use
  Company Number: OCTA-ALB25-01-S202-01

PATIENT
  Sex: Male
  Weight: 82 kg

DRUGS (13)
  1. ALBUMIN (HUMAN) [Suspect]
     Indication: BLOOD ALBUMIN
     Dosage: SEE IMAGE
     Route: 042
     Dates: start: 20050713
  2. ALBUMIN (HUMAN) [Suspect]
     Indication: FLUID REPLACEMENT
     Dosage: SEE IMAGE
     Route: 042
     Dates: start: 20050713
  3. ALBUMIN (HUMAN) [Suspect]
     Indication: BLOOD ALBUMIN
     Dosage: SEE IMAGE
     Route: 042
     Dates: start: 20050803
  4. ALBUMIN (HUMAN) [Suspect]
     Indication: FLUID REPLACEMENT
     Dosage: SEE IMAGE
     Route: 042
     Dates: start: 20050803
  5. LEXAPRO [Concomitant]
  6. PREVACID [Concomitant]
  7. FLOMAX [Concomitant]
  8. PROSCAR [Concomitant]
  9. HYDROXYZINE [Concomitant]
  10. MEGACE [Concomitant]
  11. REGLAN [Concomitant]
  12. LASIX [Concomitant]
  13. URSODIOL [Concomitant]

REACTIONS (5)
  - ABDOMINAL PAIN [None]
  - BLOOD BILIRUBIN INCREASED [None]
  - EPIGASTRIC DISCOMFORT [None]
  - HEPATIC CIRRHOSIS [None]
  - PYREXIA [None]
